FAERS Safety Report 20997106 (Version 1)
Quarter: 2022Q2

REPORT INFORMATION
  Report Type: Spontaneous
  Country: ES (occurrence: ES)
  Receive Date: 20220623
  Receipt Date: 20220623
  Transmission Date: 20220721
  Serious: Yes (Other)
  Sender: FDA-Public Use
  Company Number: ES-LABALTER-202201923

PATIENT
  Age: 78 Year
  Sex: Male

DRUGS (2)
  1. LEVOFLOXACIN [Suspect]
     Active Substance: LEVOFLOXACIN
     Indication: Idiopathic pulmonary fibrosis
     Dosage: 500 MILLIGRAM, ONCE A DAY
     Route: 048
  2. METHYLPREDNISOLONE [Suspect]
     Active Substance: METHYLPREDNISOLONE
     Indication: Idiopathic pulmonary fibrosis
     Dosage: 40 MILLIGRAM, ONCE A DAY
     Route: 048

REACTIONS (1)
  - Tendon rupture [Recovered/Resolved]
